FAERS Safety Report 4283153-8 (Version None)
Quarter: 2004Q1

REPORT INFORMATION
  Report Type: 
  Country: None (occurrence: None)
  Receive Date: 20040129
  Receipt Date: 20040116
  Transmission Date: 20041129
  Serious: No
  Sender: FDA-Public Use
  Company Number: 2002GB00751

PATIENT
  Age: 63 Year
  Sex: Female
  Weight: 40 kg

DRUGS (1)
  1. NOLVADEX [Suspect]
     Indication: BREAST CANCER
     Dosage: 20 MG DAILY PO
     Route: 048
     Dates: start: 20011001, end: 20020301

REACTIONS (19)
  - ABDOMINAL DISCOMFORT [None]
  - ASTHENIA [None]
  - BLOOD BLISTER [None]
  - CERVICAL DISCHARGE [None]
  - CHEST PAIN [None]
  - CHEST X-RAY ABNORMAL [None]
  - CREPITATIONS [None]
  - DIPLOPIA [None]
  - DYSPNOEA EXERTIONAL [None]
  - EPISTAXIS [None]
  - EYE PAIN [None]
  - EYE SWELLING [None]
  - HALLUCINATION, AUDITORY [None]
  - MUCOSAL HAEMORRHAGE [None]
  - OEDEMA PERIPHERAL [None]
  - PITTING OEDEMA [None]
  - RESPIRATORY TRACT CONGESTION [None]
  - THROMBOSIS [None]
  - TONGUE HAEMORRHAGE [None]
